FAERS Safety Report 6256149-4 (Version None)
Quarter: 2009Q3

REPORT INFORMATION
  Report Type: 
  Country: None (occurrence: None)
  Receive Date: 20090706
  Receipt Date: 20090623
  Transmission Date: 20100115
  Serious: Yes (Other)
  Sender: FDA-Public Use
  Company Number: PHHY2009GB16962

PATIENT
  Sex: Male

DRUGS (8)
  1. CLOZARIL [Suspect]
     Indication: SCHIZOPHRENIA
     Dosage: 425 MG, QD
     Route: 048
     Dates: start: 20081128
  2. CLOZARIL [Suspect]
     Dosage: 375 MG, UNK
     Route: 048
  3. CLOZARIL [Suspect]
     Dosage: 325 MG, UNK
     Route: 048
  4. CLOZARIL [Suspect]
     Dosage: POSSIBLY TO 250MG
  5. OMEPRAZOLE [Concomitant]
  6. LACTULOSE [Concomitant]
  7. NULYTELY [Concomitant]
  8. HYOSCINE [Concomitant]

REACTIONS (5)
  - ANTIPSYCHOTIC DRUG LEVEL INCREASED [None]
  - DYSARTHRIA [None]
  - MEMORY IMPAIRMENT [None]
  - PSYCHOTIC DISORDER [None]
  - SALIVARY HYPERSECRETION [None]
